FAERS Safety Report 9254513 (Version 5)
Quarter: 2014Q2

REPORT INFORMATION
  Report Type: Spontaneous
  Country: US (occurrence: US)
  Receive Date: 20130425
  Receipt Date: 20140422
  Transmission Date: 20141212
  Serious: Yes (Other)
  Sender: FDA-Public Use
  Company Number: US-BRISTOL-MYERS SQUIBB COMPANY-18805069

PATIENT
  Age: 27 Year
  Sex: Male

DRUGS (2)
  1. SPRYCEL (CML) TABS [Suspect]
     Indication: CHRONIC MYELOID LEUKAEMIA
  2. HYDROXYUREA [Suspect]

REACTIONS (5)
  - Malignant neoplasm progression [Unknown]
  - White blood cell count increased [Unknown]
  - Cough [Unknown]
  - Malaise [Unknown]
  - Vomiting [Unknown]
